FAERS Safety Report 11191697 (Version 1)
Quarter: 2015Q2

REPORT INFORMATION
  Report Type: Spontaneous
  Country: FR (occurrence: None)
  Receive Date: 20150612
  Receipt Date: 20150612
  Transmission Date: 20150821
  Serious: Yes (Other)
  Sender: FDA-Public Use
  Company Number: 8027641

PATIENT
  Age: 62 Year
  Sex: Female

DRUGS (2)
  1. LEVOTHYROX 125 (LEVOTHYROXINE SODIUM) (125 MICROGRAM, TABLET) (LEVOTHYROXINE SODIUM)? [Suspect]
     Active Substance: LEVOTHYROXINE
     Indication: AUTOIMMUNE THYROIDITIS
     Dosage: ONE TABLET PER DAY (1 DF, 1 IN 1 D)
     Dates: start: 1986, end: 201410
  2. CALCIUM (CALCIUM) (CALCIUM) [Suspect]
     Active Substance: CALCIUM
     Indication: OSTEOPOROSIS

REACTIONS (4)
  - Arrhythmia [None]
  - Blood thyroid stimulating hormone abnormal [None]
  - Drug interaction [None]
  - Blood thyroid stimulating hormone [None]

NARRATIVE: CASE EVENT DATE: 2013
